FAERS Safety Report 11227828 (Version 1)
Quarter: 2015Q2

REPORT INFORMATION
  Report Type: Report from Study
  Country: US (occurrence: US)
  Receive Date: 20150630
  Receipt Date: 20150630
  Transmission Date: 20150821
  Serious: Yes (Hospitalization)
  Sender: FDA-Public Use
  Company Number: US-BIOGENIDEC-2015BI089175

PATIENT
  Sex: Female

DRUGS (1)
  1. TECFIDERA [Suspect]
     Active Substance: DIMETHYL FUMARATE
     Indication: MULTIPLE SCLEROSIS
     Route: 048
     Dates: start: 2012

REACTIONS (10)
  - Urinary incontinence [Unknown]
  - Flushing [Unknown]
  - Hypersomnia [Unknown]
  - Nausea [Unknown]
  - Seizure [Recovered/Resolved]
  - Gait disturbance [Unknown]
  - Faecal incontinence [Unknown]
  - Diarrhoea [Unknown]
  - Urinary retention [Unknown]
  - Asthenia [Unknown]
